FAERS Safety Report 13193289 (Version 5)
Quarter: 2017Q2

REPORT INFORMATION
  Report Type: Report from Study
  Country: US (occurrence: US)
  Receive Date: 20170207
  Receipt Date: 20170427
  Transmission Date: 20170830
  Serious: No
  Sender: FDA-Public Use
  Company Number: US-009507513-1701USA010065

PATIENT
  Age: 75 Year
  Sex: Female

DRUGS (2)
  1. AMBIEN [Concomitant]
     Active Substance: ZOLPIDEM TARTRATE
  2. PEMBROLIZUMAB. [Suspect]
     Active Substance: PEMBROLIZUMAB
     Indication: NON-SMALL CELL LUNG CANCER
     Dosage: EVERY 3 WEEKS
     Route: 042
     Dates: start: 20170119, end: 2017

REACTIONS (4)
  - Neuropathy peripheral [Not Recovered/Not Resolved]
  - Fatigue [Not Recovered/Not Resolved]
  - Muscular weakness [Unknown]
  - Bronchitis [Not Recovered/Not Resolved]

NARRATIVE: CASE EVENT DATE: 20170120
